FAERS Safety Report 5261177-1 (Version None)
Quarter: 2007Q1

REPORT INFORMATION
  Report Type: 
  Country: None (occurrence: None)
  Receive Date: 20070309
  Receipt Date: 20070227
  Transmission Date: 20070707
  Serious: Yes (Other)
  Sender: FDA-Public Use
  Company Number: CA-PFIZER INC-2007010170

PATIENT
  Sex: Male
  Weight: 77.1 kg

DRUGS (7)
  1. SUTENT [Suspect]
     Indication: METASTATIC RENAL CELL CARCINOMA
     Route: 048
  2. CLONAZEPAM [Concomitant]
     Indication: ANXIETY
     Route: 048
  3. SENOKOT [Concomitant]
     Indication: ABDOMINAL DISCOMFORT
     Route: 048
     Dates: start: 20040501
  4. HYDROMORPH CONTIN [Concomitant]
     Indication: PAIN
     Route: 048
     Dates: start: 20040301
  5. GABAPENTIN [Concomitant]
     Indication: NEURALGIA
     Route: 048
     Dates: start: 20040101
  6. AVALIDE [Concomitant]
     Indication: HYPERTENSION
     Dosage: TEXT:300 MG, HALF TABLET
     Route: 048
     Dates: start: 20020101
  7. HYDROMORPHONE HYDROCHLORIDE [Concomitant]
     Indication: PAIN
     Dosage: DAILY DOSE:4MG
     Route: 048
     Dates: start: 20070101

REACTIONS (6)
  - BLOOD PRESSURE FLUCTUATION [None]
  - CHEST DISCOMFORT [None]
  - DYSPNOEA [None]
  - HALLUCINATION [None]
  - PNEUMONIA [None]
  - PYREXIA [None]
